FAERS Safety Report 25770155 (Version 1)
Quarter: 2025Q3

REPORT INFORMATION
  Report Type: Spontaneous
  Country: EU (occurrence: EU)
  Receive Date: 20250907
  Receipt Date: 20250907
  Transmission Date: 20251020
  Serious: Yes (Other)
  Sender: ABBVIE
  Company Number: EU-ABBVIE-6444734

PATIENT
  Age: 45 Year
  Sex: Female

DRUGS (2)
  1. MIRVETUXIMAB SORAVTANSINE [Suspect]
     Active Substance: MIRVETUXIMAB SORAVTANSINE
     Indication: Ovarian cancer
     Route: 065
     Dates: start: 202412, end: 202412
  2. MIRVETUXIMAB SORAVTANSINE [Suspect]
     Active Substance: MIRVETUXIMAB SORAVTANSINE
     Indication: Ovarian cancer
     Route: 065
     Dates: start: 202501, end: 202501

REACTIONS (4)
  - Metastases to central nervous system [Unknown]
  - VIth nerve paralysis [Unknown]
  - Brain oedema [Unknown]
  - Condition aggravated [Unknown]
